FAERS Safety Report 23883582 (Version 1)
Quarter: 2024Q2

REPORT INFORMATION
  Report Type: Spontaneous
  Country: US (occurrence: None)
  Receive Date: 20240521
  Receipt Date: 20240521
  Transmission Date: 20240716
  Serious: Yes (Hospitalization)
  Sender: FDA-Public Use
  Company Number: None

PATIENT
  Age: 61 Year
  Sex: Female

DRUGS (15)
  1. AMBRISENTAN [Suspect]
     Active Substance: AMBRISENTAN
     Indication: Pulmonary hypertension
     Dosage: FREQUENCY : DAILY;?
     Route: 048
     Dates: start: 20231031, end: 20240413
  2. SILDENAFIL [Concomitant]
     Active Substance: SILDENAFIL
  3. ATORVASTATIN [Concomitant]
     Active Substance: ATORVASTATIN
  4. DILTIAZEM [Concomitant]
     Active Substance: DILTIAZEM
  5. FUROSEMIDE [Concomitant]
     Active Substance: FUROSEMIDE
  6. LEVOTHYROXINE [Concomitant]
     Active Substance: LEVOTHYROXINE\LEVOTHYROXINE SODIUM
  7. LORATADINE [Concomitant]
     Active Substance: LORATADINE
  8. METOLAZONE [Concomitant]
     Active Substance: METOLAZONE
  9. METOPROLOL [Concomitant]
     Active Substance: METOPROLOL
  10. MONTELUKAST [Concomitant]
     Active Substance: MONTELUKAST SODIUM
  11. pantooprazole [Concomitant]
  12. PREDNISONE [Concomitant]
     Active Substance: PREDNISONE
  13. PREGABALIN [Concomitant]
     Active Substance: PREGABALIN
  14. TYLENOL [Concomitant]
     Active Substance: ACETAMINOPHEN
  15. ONDANSETRON [Concomitant]
     Active Substance: ONDANSETRON

REACTIONS (2)
  - Hypervolaemia [None]
  - Diastolic dysfunction [None]

NARRATIVE: CASE EVENT DATE: 20240404
